FAERS Safety Report 13026535 (Version 1)
Quarter: 2016Q4

REPORT INFORMATION
  Report Type: Spontaneous
  Country: BR (occurrence: BR)
  Receive Date: 20161214
  Receipt Date: 20161214
  Transmission Date: 20170207
  Serious: Yes (Other)
  Sender: FDA-Public Use
  Company Number: PHHY2016BR170194

PATIENT
  Sex: Female

DRUGS (2)
  1. DIOVAN [Suspect]
     Active Substance: VALSARTAN
     Indication: HYPERTENSION
     Dosage: UNK
     Route: 048
  2. DIOVAN AMLO FIX [Suspect]
     Active Substance: AMLODIPINE\VALSARTAN
     Indication: HYPERTENSION
     Dosage: 1 DF, QD AMLODIPINE 10 MG AND VALSARTAN 320 MG,1 DF, QD (1 TABLET IN THE MORNING, AFTER BREAKFAST)
     Route: 048

REACTIONS (4)
  - Cough [Unknown]
  - Carotid artery occlusion [Unknown]
  - Hypotension [Not Recovered/Not Resolved]
  - Syncope [Recovering/Resolving]
